FAERS Safety Report 23291417 (Version 1)
Quarter: 2023Q4

REPORT INFORMATION
  Report Type: Report from Study
  Country: BR (occurrence: BR)
  Receive Date: 20231213
  Receipt Date: 20231213
  Transmission Date: 20240109
  Serious: Yes (Disabling, Other)
  Sender: FDA-Public Use
  Company Number: BR-TAKEDA-2023TUS119183

PATIENT
  Sex: Female

DRUGS (3)
  1. HEMO-8R [Suspect]
     Active Substance: ANTIHEMOPHILIC FACTOR, HUMAN RECOMBINANT
     Indication: Factor VIII deficiency
     Dosage: 2000 INTERNATIONAL UNIT, 3/WEEK
     Route: 042
     Dates: start: 20180718
  2. METOPROLOL [Concomitant]
     Active Substance: METOPROLOL
     Indication: Hypertension
     Dosage: UNK
  3. EVOGLIPTIN TARTRATE [Concomitant]
     Active Substance: EVOGLIPTIN TARTRATE
     Indication: Diabetes mellitus
     Dosage: UNK

REACTIONS (6)
  - Haemorrhage [Unknown]
  - Diabetes mellitus [Unknown]
  - Paraplegia [Unknown]
  - Von Willebrand^s disease [Unknown]
  - Depression [Unknown]
  - Blood cholesterol abnormal [Unknown]

NARRATIVE: CASE EVENT DATE: 20180101
